FAERS Safety Report 4399511-7 (Version None)
Quarter: 2004Q3

REPORT INFORMATION
  Report Type: 
  Country: None (occurrence: None)
  Receive Date: 20040712
  Receipt Date: 20040622
  Transmission Date: 20050211
  Serious: No
  Sender: FDA-Public Use
  Company Number: A01200402915

PATIENT
  Age: 67 Year
  Sex: Male

DRUGS (1)
  1. XATRAL - (ALFUZOSIN) - TABLET [Suspect]
     Indication: PROSTATITIS
     Dosage: 10 MG ORAL
     Route: 048
     Dates: start: 20040504, end: 20040524

REACTIONS (1)
  - ANGIONEUROTIC OEDEMA [None]
